FAERS Safety Report 5025533-9 (Version None)
Quarter: 2006Q2

REPORT INFORMATION
  Report Type: 
  Country: None (occurrence: None)
  Receive Date: 20060608
  Receipt Date: 20030711
  Transmission Date: 20061013
  Serious: No
  Sender: FDA-Public Use
  Company Number: 2003-07-0126

PATIENT
  Age: 66 Year
  Sex: Female

DRUGS (3)
  1. ETHYOL [Suspect]
     Indication: PROPHYLAXIS
     Dosage: SUBCUTANEOUS
     Route: 058
     Dates: start: 20030521, end: 20060603
  2. RADIATION THERAPY [Suspect]
     Indication: BREAST CANCER
     Dates: start: 20030521
  3. ZYMOPLEX [Concomitant]

REACTIONS (4)
  - INJECTION SITE RASH [None]
  - PRURITUS [None]
  - PYREXIA [None]
  - RASH GENERALISED [None]
